FAERS Safety Report 8382006-3 (Version None)
Quarter: 2012Q2

REPORT INFORMATION
  Report Type: 
  Country: None (occurrence: None)
  Receive Date: 20120524
  Receipt Date: 20120509
  Transmission Date: 20120825
  Serious: Yes (Death, Hospitalization)
  Sender: FDA-Public Use
  Company Number: CH-JNJFOC-20120516324

PATIENT
  Age: 82 Year
  Sex: Male
  Weight: 80 kg

DRUGS (21)
  1. HALCION [Concomitant]
     Dates: end: 20111229
  2. DIPYRONE TAB [Concomitant]
     Dates: end: 20120105
  3. DUTASTERIDE [Concomitant]
     Dates: end: 20120105
  4. ATACAND [Suspect]
     Indication: ILL-DEFINED DISORDER
     Dates: end: 20111230
  5. MINOCIN [Suspect]
     Dates: start: 20111231, end: 20120105
  6. RIMACTANE [Suspect]
     Dates: start: 20120102
  7. RIMACTANE [Suspect]
     Dates: start: 20120103
  8. TORSEMIDE [Suspect]
     Indication: ILL-DEFINED DISORDER
     Dates: end: 20111201
  9. FLUTICASONE PROPIONATE/SALMETEROL [Concomitant]
     Dates: end: 20120105
  10. NEBIVOLOL HCL [Concomitant]
     Dates: end: 20120105
  11. ASPIRIN [Suspect]
     Indication: ILL-DEFINED DISORDER
     Dates: end: 20120105
  12. PANTOPRAZOLE [Suspect]
     Indication: ILL-DEFINED DISORDER
     Dates: end: 20120105
  13. MINOCIN [Suspect]
     Indication: DEVICE RELATED INFECTION
     Dates: start: 20111201, end: 20111229
  14. RIMACTANE [Suspect]
     Indication: DEVICE RELATED INFECTION
     Dates: start: 20111201, end: 20111227
  15. PLAVIX [Suspect]
     Indication: ILL-DEFINED DISORDER
     Dates: end: 20111201
  16. NEURONTIN [Concomitant]
     Dates: end: 20111229
  17. ALPHA-ADRENORECEPTOR ANTAGONISTS [Concomitant]
     Dates: end: 20120105
  18. XARELTO [Suspect]
     Indication: ILL-DEFINED DISORDER
     Route: 048
     Dates: start: 20110101, end: 20120103
  19. METAMUCIL-2 [Concomitant]
  20. ARTEOPTIC [Concomitant]
     Dates: end: 20120105
  21. MAGNESIOCARD [Concomitant]
     Dates: end: 20120103

REACTIONS (9)
  - JAUNDICE [None]
  - HYPERBILIRUBINAEMIA [None]
  - GAMMA-GLUTAMYLTRANSFERASE INCREASED [None]
  - BLOOD ALKALINE PHOSPHATASE INCREASED [None]
  - ALANINE AMINOTRANSFERASE INCREASED [None]
  - LIVER INJURY [None]
  - ASPARTATE AMINOTRANSFERASE INCREASED [None]
  - VOMITING [None]
  - DIARRHOEA [None]
